FAERS Safety Report 9765629 (Version 1)
Quarter: 2013Q4

REPORT INFORMATION
  Report Type: Spontaneous
  Country: US (occurrence: US)
  Receive Date: 20131217
  Receipt Date: 20131217
  Transmission Date: 20140711
  Serious: No
  Sender: FDA-Public Use
  Company Number: US-GLAXOSMITHKLINE-A1008592A

PATIENT
  Sex: Male
  Weight: 97.3 kg

DRUGS (7)
  1. VOTRIENT [Suspect]
     Indication: PAPILLARY THYROID CANCER
     Dosage: 800MG PER DAY
     Route: 048
  2. AMLODIPINE [Concomitant]
  3. SYNTHROID [Concomitant]
  4. METFORMIN ER [Concomitant]
  5. PRAVASTATIN [Concomitant]
  6. HYDROCORTISONE [Concomitant]
  7. LOSARTAN POTASSIUM [Concomitant]

REACTIONS (6)
  - Decreased appetite [Unknown]
  - Dysgeusia [Unknown]
  - Pain [Unknown]
  - Musculoskeletal pain [Unknown]
  - Back pain [Unknown]
  - Fatigue [Unknown]
